FAERS Safety Report 18212339 (Version 3)
Quarter: 2020Q4

REPORT INFORMATION
  Report Type: Spontaneous
  Country: JP (occurrence: JP)
  Receive Date: 20200831
  Receipt Date: 20201005
  Transmission Date: 20210113
  Serious: Yes (Death)
  Sender: FDA-Public Use
  Company Number: NVSJ2020JP004730

PATIENT
  Age: 80 Year
  Sex: Female

DRUGS (4)
  1. OCTREOTIDE ACETATE. [Suspect]
     Active Substance: OCTREOTIDE ACETATE
  2. OCTREOTIDE ACETATE. [Suspect]
     Active Substance: OCTREOTIDE ACETATE
  3. OCTREOTIDE ACETATE. [Suspect]
     Active Substance: OCTREOTIDE ACETATE
     Indication: GASTROINTESTINAL OBSTRUCTION
     Dosage: UNK
     Route: 042
  4. ELNEOPA NO.1 [Concomitant]
     Active Substance: AMINO ACIDS\DEXTROSE\ELECTROLYTES NOS\MINERALS\VITAMINS
     Indication: PRODUCT USED FOR UNKNOWN INDICATION
     Dosage: UNK
     Route: 041

REACTIONS (4)
  - Nausea [Unknown]
  - Concomitant disease progression [Fatal]
  - Neoplasm malignant [Fatal]
  - Product use issue [Unknown]
